FAERS Safety Report 19667326 (Version 2)
Quarter: 2021Q4

REPORT INFORMATION
  Report Type: Report from Study
  Country: US (occurrence: US)
  Receive Date: 20210806
  Receipt Date: 20211111
  Transmission Date: 20220303
  Serious: No
  Sender: FDA-Public Use
  Company Number: US-AURINIA PHARMACEUTICALS INC.-AUR-000087

PATIENT
  Age: 55 Year
  Sex: Female

DRUGS (3)
  1. LUPKYNIS [Suspect]
     Active Substance: VOCLOSPORIN
     Indication: Lupus nephritis
     Dosage: 23.7 MILLIGRAM, BID
     Route: 048
     Dates: start: 20210427
  2. LUPKYNIS [Suspect]
     Active Substance: VOCLOSPORIN
     Dosage: 23.7 MILLIGRAM, BID
     Route: 048
     Dates: start: 20210507, end: 20210825
  3. CLONIDINE [Concomitant]
     Active Substance: CLONIDINE

REACTIONS (10)
  - Muscle spasms [Recovering/Resolving]
  - Myalgia [Recovering/Resolving]
  - Dehydration [Not Recovered/Not Resolved]
  - Sluggishness [Not Recovered/Not Resolved]
  - Dry mouth [Unknown]
  - Ligament sprain [Recovering/Resolving]
  - Fatigue [Recovering/Resolving]
  - Headache [Not Recovered/Not Resolved]
  - Hypertension [Not Recovered/Not Resolved]
  - Product packaging difficult to open [Unknown]

NARRATIVE: CASE EVENT DATE: 20210427
